FAERS Safety Report 5014717-1 (Version None)
Quarter: 2006Q2

REPORT INFORMATION
  Report Type: 
  Country: None (occurrence: None)
  Receive Date: 20060531
  Receipt Date: 20060524
  Transmission Date: 20061013
  Serious: Yes (Hospitalization)
  Sender: FDA-Public Use
  Company Number: US-GLAXOSMITHKLINE-A0606798A

PATIENT
  Age: 38 Year
  Sex: Female

DRUGS (2)
  1. LAMICTAL [Suspect]
     Indication: BIPOLAR DISORDER
     Dosage: 25MG PER DAY
     Route: 048
     Dates: start: 20050801, end: 20050905
  2. WELLBUTRIN [Concomitant]

REACTIONS (5)
  - FUNGAL INFECTION [None]
  - INCORRECT DOSE ADMINISTERED [None]
  - RASH [None]
  - SCAR [None]
  - STEVENS-JOHNSON SYNDROME [None]
